FAERS Safety Report 5431532-5 (Version None)
Quarter: 2007Q3

REPORT INFORMATION
  Report Type: 
  Country: None (occurrence: None)
  Receive Date: 20070830
  Receipt Date: 20070822
  Transmission Date: 20080115
  Serious: Yes (Hospitalization)
  Sender: FDA-Public Use
  Company Number: US-JNJFOC-20070702106

PATIENT
  Sex: Female
  Weight: 49.5 kg

DRUGS (14)
  1. DOXORUBICIN HCL [Suspect]
     Indication: MULTIPLE MYELOMA
     Dosage: DAYS 1 AND 15 OF CYCLE
     Route: 042
  2. FENTANYL [Suspect]
     Route: 048
  3. FENTANYL [Suspect]
     Indication: BACK PAIN
     Route: 048
  4. VELCADE [Suspect]
     Indication: MULTIPLE MYELOMA
     Dosage: DAYS 1,4,15 AND 18 OF CYCLE
     Route: 042
  5. THALIDOMIDE [Suspect]
     Indication: MULTIPLE MYELOMA
     Route: 048
  6. XANAX [Suspect]
     Route: 048
  7. XANAX [Suspect]
     Indication: DRUG USE FOR UNKNOWN INDICATION
     Route: 048
  8. KLONOPIN [Concomitant]
     Route: 065
  9. CELEXA [Concomitant]
     Route: 065
  10. LEXAPRO [Concomitant]
     Route: 048
  11. OXYCODONE HCL [Concomitant]
     Route: 048
  12. SENNA [Concomitant]
     Route: 048
  13. WARFARIN SODIUM [Concomitant]
     Route: 048
  14. COENZYME Q10 [Concomitant]
     Route: 048

REACTIONS (2)
  - MULTIPLE DRUG OVERDOSE [None]
  - SUICIDE ATTEMPT [None]
